FAERS Safety Report 8170799-X (Version None)
Quarter: 2012Q1

REPORT INFORMATION
  Report Type: 
  Country: None (occurrence: None)
  Receive Date: 20120104
  Receipt Date: 20111208
  Transmission Date: 20120608
  Serious: No
  Sender: FDA-Public Use
  Company Number: 2011HGS-002950

PATIENT
  Age: 37 Year
  Sex: Female
  Weight: 58.9676 kg

DRUGS (6)
  1. ZANTAC [Concomitant]
  2. OMEGA-3 (OMEGA-3 TRIGLYCERIDES) (OMEGA-3 TRIGLYCERIDES) [Concomitant]
  3. BENLYSTA [Suspect]
     Indication: SYSTEMIC LUPUS ERYTHEMATOSUS
     Dosage: 1 IN 28 D, INTRAVENOUS DRIP
     Route: 041
     Dates: start: 20111107
  4. VITAMIN C (ASCORBIC ACID) (ASCORBIC ACID) [Concomitant]
  5. PLAQUENIL (HYDROXYCHLOROQUINE SULFATE) (HYDROXYCHLOROQUINE SULFATE) [Concomitant]
  6. DURAGESIC (FENTANYL) (FENTANYL) [Concomitant]

REACTIONS (5)
  - PAIN [None]
  - SENSATION OF HEAVINESS [None]
  - NAUSEA [None]
  - RASH [None]
  - FLUSHING [None]
